FAERS Safety Report 4576606-6 (Version None)
Quarter: 2005Q1

REPORT INFORMATION
  Report Type: 
  Country: None (occurrence: None)
  Receive Date: 20050118
  Receipt Date: 20041202
  Transmission Date: 20050727
  Serious: Yes (Hospitalization, Other)
  Sender: FDA-Public Use
  Company Number: 2004086357

PATIENT
  Age: 73 Year
  Sex: Male

DRUGS (12)
  1. GEODON [Suspect]
     Indication: AGITATION
     Dosage: 10 MG (10 MG, 1 IN 1 D), INTRAMUSCULAR
     Route: 030
  2. GEODON [Suspect]
     Indication: DEMENTIA
     Dosage: 10 MG (10 MG, 1 IN 1 D), INTRAMUSCULAR
     Route: 030
  3. GEODON [Suspect]
     Indication: SCHIZOPHRENIA
     Dosage: 10 MG (10 MG, 1 IN 1 D), INTRAMUSCULAR
     Route: 030
  4. GEODON [Suspect]
     Indication: TREATMENT NONCOMPLIANCE
     Dosage: 10 MG (10 MG, 1 IN 1 D), INTRAMUSCULAR
     Route: 030
  5. LISINOPRIL [Concomitant]
  6. VALPROATE SODIUM [Concomitant]
  7. EZETIMIBE (EZETIMIBE) [Concomitant]
  8. ATROVASTATIN (ATORVASTATIN) [Concomitant]
  9. RAMIPRIL [Concomitant]
  10. ACETYLSALICYLIC ACID SRT [Concomitant]
  11. DONEPEZIL HCL [Concomitant]
  12. RISPERIDONE (RISEPERIDONE) [Concomitant]

REACTIONS (1)
  - ELECTROCARDIOGRAM QT CORRECTED INTERVAL PROLONGED [None]
